FAERS Safety Report 22384240 (Version 1)
Quarter: 2023Q2

REPORT INFORMATION
  Report Type: Spontaneous
  Country: US (occurrence: None)
  Receive Date: 20230527
  Receipt Date: 20230527
  Transmission Date: 20230722
  Serious: Yes (Other)
  Sender: FDA-Public Use
  Company Number: None

PATIENT
  Age: 39 Year
  Sex: Female
  Weight: 78.75 kg

DRUGS (9)
  1. EMGALITY [Suspect]
     Active Substance: GALCANEZUMAB-GNLM
     Indication: Migraine
     Dosage: OTHER FREQUENCY : ONCE A MONTH;?
     Route: 058
     Dates: start: 20230419
  2. NURTEC ODT [Concomitant]
     Active Substance: RIMEGEPANT SULFATE
  3. MONTELUKAST [Concomitant]
     Active Substance: MONTELUKAST SODIUM
  4. COENZYME Q10 [Concomitant]
     Active Substance: DIETARY SUPPLEMENT\UBIDECARENONE
  5. FISH OIL [Concomitant]
     Active Substance: FISH OIL
  6. MAGNESIUM [Concomitant]
     Active Substance: MAGNESIUM
  7. sea moss [Concomitant]
  8. VITAMINS [Concomitant]
     Active Substance: VITAMINS
  9. MECLIZINE [Concomitant]
     Active Substance: MECLIZINE HYDROCHLORIDE

REACTIONS (12)
  - Vertigo [None]
  - Nausea [None]
  - Depression [None]
  - Loss of personal independence in daily activities [None]
  - Bedridden [None]
  - Apathy [None]
  - Dermatitis [None]
  - Dermatitis [None]
  - Weight increased [None]
  - Hypophagia [None]
  - Therapy interrupted [None]
  - Weight decreased [None]

NARRATIVE: CASE EVENT DATE: 20230424
